FAERS Safety Report 20925371 (Version 2)
Quarter: 2022Q3

REPORT INFORMATION
  Report Type: Report from Study
  Country: US (occurrence: None)
  Receive Date: 20220607
  Receipt Date: 20220715
  Transmission Date: 20221027
  Serious: Yes (Death, Hospitalization, Other)
  Sender: FDA-Public Use
  Company Number: US-ROCHE-3100089

PATIENT
  Age: 81 Year
  Sex: Male
  Weight: 85.1 kg

DRUGS (3)
  1. VENETOCLAX [Suspect]
     Active Substance: VENETOCLAX
     Indication: Chronic lymphocytic leukaemia
     Dosage: 19/APR/2022:LAST DOSE ADMINISTERED
     Route: 048
     Dates: start: 20211129
  2. OBINUTUZUMAB [Suspect]
     Active Substance: OBINUTUZUMAB
     Indication: Chronic lymphocytic leukaemia
     Dosage: 900 MG IV ON C1D2, 1000 MG IV ON C1D8 + C1D15, C2-6D1?05/APR/2022: LAST DOSE ADMINISTERED.
     Route: 042
     Dates: start: 20211129
  3. IBRUTINIB [Suspect]
     Active Substance: IBRUTINIB
     Indication: Chronic lymphocytic leukaemia
     Dosage: 20/APR/2022:LAST DOSE ADMINISTERED
     Route: 048
     Dates: start: 20220405

REACTIONS (10)
  - Hypoxia [Recovered/Resolved]
  - Death [Fatal]
  - Neutropenia [Recovered/Resolved]
  - COVID-19 pneumonia [Recovered/Resolved]
  - Dyspnoea [Recovered/Resolved]
  - Febrile neutropenia [Recovered/Resolved]
  - Hypertension [Recovered/Resolved]
  - Hypoalbuminaemia [Recovered/Resolved]
  - Lymphocyte count decreased [Recovered/Resolved]
  - White blood cell count decreased [Recovered/Resolved]

NARRATIVE: CASE EVENT DATE: 20220419
